FAERS Safety Report 6082490-4 (Version None)
Quarter: 2009Q1

REPORT INFORMATION
  Report Type: 
  Country: None (occurrence: None)
  Receive Date: 20090202
  Receipt Date: 20070810
  Transmission Date: 20090719
  Serious: No
  Sender: FDA-Public Use
  Company Number: 265136

PATIENT
  Age: 62 Year
  Sex: Male

DRUGS (2)
  1. NOVOLOG [Suspect]
     Indication: DIABETES MELLITUS
     Dosage: 110-116 IU, QD, SUBCUTAN.-PUMP
     Dates: start: 20060401
  2. METFORMIN HCL [Concomitant]

REACTIONS (1)
  - BLOOD GLUCOSE DECREASED [None]
